FAERS Safety Report 6861113-8 (Version None)
Quarter: 2010Q3

REPORT INFORMATION
  Report Type: 
  Country: None (occurrence: None)
  Receive Date: 20100720
  Receipt Date: 20100709
  Transmission Date: 20110219
  Serious: No
  Sender: FDA-Public Use
  Company Number: US-JNJFOC-20100703669

PATIENT
  Age: 25 Year
  Sex: Female
  Weight: 70.31 kg

DRUGS (10)
  1. DURAGESIC-100 [Suspect]
     Indication: FIBROMYALGIA
     Route: 062
  2. DURAGESIC-100 [Suspect]
     Indication: SYSTEMIC LUPUS ERYTHEMATOSUS
     Route: 062
  3. DURAGESIC-100 [Suspect]
     Indication: RHEUMATOID ARTHRITIS
     Route: 062
  4. DURAGESIC-100 [Suspect]
     Indication: PAIN
     Route: 062
  5. DURAGESIC-100 [Suspect]
     Dosage: NDC: 50458-0091-05
     Route: 062
  6. DURAGESIC-100 [Suspect]
     Dosage: NDC: 50458-0091-05
     Route: 062
  7. DURAGESIC-100 [Suspect]
     Dosage: NDC: 50458-0091-05
     Route: 062
  8. DURAGESIC-100 [Suspect]
     Dosage: NDC: 50458-0091-05
     Route: 062
  9. COUMADIN [Concomitant]
     Indication: ANTICOAGULANT THERAPY
     Route: 048
  10. PERCOCET [Concomitant]
     Indication: PAIN
     Dosage: 5/325 MG/ Q4-6 HOURS AS NEEDED
     Route: 048

REACTIONS (7)
  - ANXIETY [None]
  - APPLICATION SITE IRRITATION [None]
  - APPLICATION SITE VESICLES [None]
  - DRUG ADMINISTERED AT INAPPROPRIATE SITE [None]
  - FIBROMYALGIA [None]
  - OEDEMA [None]
  - WRONG TECHNIQUE IN DRUG USAGE PROCESS [None]
